FAERS Safety Report 19616751 (Version 3)
Quarter: 2021Q3

REPORT INFORMATION
  Report Type: Spontaneous
  Country: IT (occurrence: IT)
  Receive Date: 20210728
  Receipt Date: 20210814
  Transmission Date: 20211014
  Serious: Yes (Other)
  Sender: FDA-Public Use
  Company Number: IT-AUROBINDO-AUR-APL-2021-031672

PATIENT
  Sex: Female
  Weight: .6 kg

DRUGS (1)
  1. FUROSEMIDE. [Suspect]
     Active Substance: FUROSEMIDE
     Indication: HYPERCALCAEMIA
     Dosage: 1.5 MILLIGRAM/KILOGRAM, FOUR TIMES/DAY
     Route: 042

REACTIONS (1)
  - Drug ineffective for unapproved indication [Unknown]
